FAERS Safety Report 16333560 (Version 1)
Quarter: 2019Q2

REPORT INFORMATION
  Report Type: Spontaneous
  Country: US (occurrence: US)
  Receive Date: 20190520
  Receipt Date: 20190520
  Transmission Date: 20190711
  Serious: No
  Sender: FDA-Public Use
  Company Number: US-UPSHER-SMITH LABORATORIES, LLC-2019USL00259

PATIENT
  Sex: Female
  Weight: 106.58 kg

DRUGS (4)
  1. UNSPECIFIED MEDICATIONS [Concomitant]
     Active Substance: UNSPECIFIED INGREDIENT
  2. POTASSIUM CHLORIDE. [Suspect]
     Active Substance: POTASSIUM CHLORIDE
     Indication: BLOOD POTASSIUM DECREASED
     Dosage: 10 MEQ, 1X/DAY
     Route: 048
  3. POTASSIUM CHLORIDE. [Suspect]
     Active Substance: POTASSIUM CHLORIDE
     Dosage: 40 MEQ, 1X/DAY
     Route: 048
  4. STEROID [Concomitant]
     Active Substance: UNSPECIFIED INGREDIENT
     Dosage: PERIODICALLY

REACTIONS (3)
  - Wrong technique in product usage process [Recovered/Resolved]
  - Hypokalaemia [Recovered/Resolved]
  - Product residue present [Not Recovered/Not Resolved]
